FAERS Safety Report 4551292-X (Version None)
Quarter: 2005Q1

REPORT INFORMATION
  Report Type: 
  Country: None (occurrence: None)
  Receive Date: 20050110
  Receipt Date: 20041228
  Transmission Date: 20050727
  Serious: Yes (Other)
  Sender: FDA-Public Use
  Company Number: HQWYE288629DEC04

PATIENT
  Age: 48 Year
  Sex: Male

DRUGS (7)
  1. RAPAMUNE [Suspect]
     Indication: PROPHYLAXIS AGAINST TRANSPLANT REJECTION
     Dosage: 4 MG 1X PER 1 DAY
     Route: 048
     Dates: start: 20040223, end: 20040315
  2. PANTOLOC ^BYK MADAUS^ (PANTOPRAZOLE) [Concomitant]
  3. NORVASC [Concomitant]
  4. NOROXIN [Concomitant]
  5. METOPROLOL TARTRATE [Concomitant]
  6. SORTIS ^GOEDECKE^ (ATORVASTATIN CALCIUM) [Concomitant]
  7. ACEZIDE (CAPTOPRIL / HYDROCHLOROTHIAZIDE) [Concomitant]

REACTIONS (1)
  - ARTHRITIS [None]
